FAERS Safety Report 10083557 (Version 1)
Quarter: 2014Q2

REPORT INFORMATION
  Report Type: Spontaneous
  Country: US (occurrence: US)
  Receive Date: 20140417
  Receipt Date: 20140417
  Transmission Date: 20141212
  Serious: No
  Sender: FDA-Public Use
  Company Number: US-BAYER-2014-057088

PATIENT
  Age: 89 Year
  Sex: Female
  Weight: 60.77 kg

DRUGS (4)
  1. ALEVE CAPLET [Suspect]
     Indication: ARTHRITIS
     Dosage: 1 DF, PRN
     Route: 048
  2. ALEVE CAPLET [Suspect]
     Indication: ARTHRALGIA
  3. CENTRUM SILVER [Concomitant]
  4. ANASTROZOLE [Concomitant]

REACTIONS (1)
  - Drug ineffective [None]
